FAERS Safety Report 8611379-9 (Version None)
Quarter: 2012Q3

REPORT INFORMATION
  Report Type: 
  Country: None (occurrence: None)
  Receive Date: 20120822
  Receipt Date: 20120816
  Transmission Date: 20120928
  Serious: Yes (Other)
  Sender: FDA-Public Use
  Company Number: IN-PFIZER INC-2012171883

PATIENT

DRUGS (2)
  1. PHENYTOIN SODIUM [Suspect]
     Indication: CONVULSION
  2. DILANTIN [Suspect]
     Indication: CONVULSION
     Dosage: 1 ML, 2X/DAY
     Route: 048
     Dates: start: 20120101

REACTIONS (3)
  - DRUG INEFFECTIVE [None]
  - ANTICONVULSANT DRUG LEVEL DECREASED [None]
  - ATAXIA [None]
